FAERS Safety Report 5119321-2 (Version None)
Quarter: 2006Q3

REPORT INFORMATION
  Report Type: 
  Country: None (occurrence: None)
  Receive Date: 20060929
  Receipt Date: 20060823
  Transmission Date: 20061208
  Serious: Yes (Hospitalization, Other)
  Sender: FDA-Public Use
  Company Number: 2006059086

PATIENT
  Age: 61 Year
  Sex: Female
  Weight: 62.5964 kg

DRUGS (3)
  1. CELEBREX [Suspect]
     Indication: ARTHRALGIA
     Dosage: (200 MG)
     Dates: start: 19990101, end: 19990101
  2. ZESTRIL [Concomitant]
  3. LIPITOR [Concomitant]

REACTIONS (6)
  - ANGIOPATHY [None]
  - CONDITION AGGRAVATED [None]
  - HYPERTENSION [None]
  - INGUINAL HERNIA [None]
  - MYOCARDIAL INFARCTION [None]
  - TREATMENT NONCOMPLIANCE [None]
